FAERS Safety Report 5702676-5 (Version None)
Quarter: 2008Q2

REPORT INFORMATION
  Report Type: 
  Country: None (occurrence: None)
  Receive Date: 20080410
  Receipt Date: 20080410
  Transmission Date: 20081010
  Serious: Yes (Other)
  Sender: FDA-Public Use
  Company Number: None

PATIENT
  Age: 6 Year
  Sex: Male
  Weight: 19.0511 kg

DRUGS (1)
  1. SINGULAIR [Suspect]
     Indication: ASTHMA
     Dosage: ONE TABLET EVERY DAY PO
     Route: 048
     Dates: start: 20060327, end: 20070407

REACTIONS (4)
  - AGGRESSION [None]
  - FEELING ABNORMAL [None]
  - SCREAMING [None]
  - SUICIDAL IDEATION [None]
